FAERS Safety Report 15562482 (Version 2)
Quarter: 2018Q4

REPORT INFORMATION
  Report Type: Report from Study
  Country: CO (occurrence: CO)
  Receive Date: 20181029
  Receipt Date: 20181119
  Transmission Date: 20190205
  Serious: Yes (Death, Hospitalization)
  Sender: FDA-Public Use
  Company Number: CO-SEATTLE GENETICS-2018SGN02720

PATIENT
  Sex: Female
  Weight: 35 kg

DRUGS (1)
  1. BRENTUXIMAB VEDOTIN-MPI [Suspect]
     Active Substance: BRENTUXIMAB VEDOTIN
     Indication: HODGKIN^S DISEASE
     Dosage: 85 MG, Q21D
     Route: 042
     Dates: start: 20180822, end: 20180822

REACTIONS (4)
  - Death [Fatal]
  - Haemoglobin abnormal [Unknown]
  - Platelet disorder [Unknown]
  - Weight decreased [Unknown]
